FAERS Safety Report 18574711 (Version 1)
Quarter: 2020Q4

REPORT INFORMATION
  Report Type: Report from Study
  Country: KR (occurrence: KR)
  Receive Date: 20201203
  Receipt Date: 20201203
  Transmission Date: 20210114
  Serious: Yes (Hospitalization)
  Sender: FDA-Public Use
  Company Number: KR-TAKEDA-2020TUS054629

PATIENT
  Age: 45 Year
  Sex: Female

DRUGS (15)
  1. DICHLOZID [Concomitant]
     Indication: THYROIDECTOMY
     Dosage: 12.5 MG, QD
     Route: 048
     Dates: start: 20180503
  2. ACLOVA [ACICLOVIR] [Concomitant]
     Indication: PRODUCT USED FOR UNKNOWN INDICATION
     Dosage: 400 MILLIGRAM, QD
     Route: 048
     Dates: start: 20181129
  3. DICAMAX [Concomitant]
     Indication: THYROIDECTOMY
     Dosage: 250 MILLIGRAM, QD
     Route: 048
     Dates: start: 20181206
  4. SYNTHROID [Concomitant]
     Active Substance: LEVOTHYROXINE SODIUM
     Indication: THYROIDECTOMY
     Dosage: 0.125 MG, QD
     Route: 048
     Dates: start: 2010
  5. PONATINIB [Suspect]
     Active Substance: PONATINIB
     Dosage: 45 MILLIGRAM, QD
     Route: 048
     Dates: start: 20181108, end: 20181205
  6. LIDOCAINE. [Concomitant]
     Active Substance: LIDOCAINE
     Indication: PREMEDICATION
     Dosage: 400 MG, QOD
     Route: 058
     Dates: start: 20181101, end: 20181101
  7. ESOMEZOL [ESOMEPRAZOLE MAGNESIUM] [Concomitant]
     Indication: GASTROINTESTINAL DISORDER
     Dosage: 20 MILLIGRAM, QD
     Route: 048
     Dates: start: 20181217, end: 20190414
  8. CORTISOLU [Concomitant]
     Active Substance: HYDROCORTISONE SODIUM SUCCINATE
     Indication: PREMEDICATION
     Dosage: 50 MILLIGRAM, QOD
     Route: 037
     Dates: start: 20181101, end: 20181101
  9. EBASTEL [Concomitant]
     Active Substance: EBASTINE
     Indication: PRODUCT USED FOR UNKNOWN INDICATION
     Dosage: 10 MILLIGRAM, QD
     Route: 048
     Dates: start: 20181206
  10. PONATINIB [Suspect]
     Active Substance: PONATINIB
     Indication: ACUTE LYMPHOCYTIC LEUKAEMIA
     Dosage: 30 MILLIGRAM, QD
     Route: 048
     Dates: start: 20181206, end: 20190507
  11. LIDOCAINE. [Concomitant]
     Active Substance: LIDOCAINE
     Dosage: 400 MILLIGRAM
     Route: 058
     Dates: start: 20181109, end: 20190508
  12. CYTARABINE. [Concomitant]
     Active Substance: CYTARABINE
     Indication: ACUTE LYMPHOCYTIC LEUKAEMIA RECURRENT
     Dosage: 50 MILLIGRAM, QD
     Route: 037
     Dates: start: 20181109, end: 20190508
  13. ULTRACET [Concomitant]
     Active Substance: ACETAMINOPHEN\TRAMADOL HYDROCHLORIDE
     Indication: HERPES ZOSTER
     Dosage: 65050 MILLIGRAM, QD
     Route: 048
     Dates: start: 20181217, end: 20190414
  14. CORTISOLU [Concomitant]
     Active Substance: HYDROCORTISONE SODIUM SUCCINATE
     Dosage: 50 MILLIGRAM
     Route: 037
     Dates: start: 20181109, end: 20190508
  15. PONATINIB [Suspect]
     Active Substance: PONATINIB
     Dosage: 45 MILLIGRAM, QD
     Route: 048
     Dates: start: 20190508

REACTIONS (1)
  - Radiculopathy [Recovered/Resolved]

NARRATIVE: CASE EVENT DATE: 20190302
